FAERS Safety Report 7788173-4 (Version None)
Quarter: 2011Q3

REPORT INFORMATION
  Report Type: 
  Country: None (occurrence: None)
  Receive Date: 20110930
  Receipt Date: 20110919
  Transmission Date: 20111222
  Serious: Yes (Hospitalization)
  Sender: FDA-Public Use
  Company Number: CA-JNJFOC-20110909150

PATIENT
  Sex: Female
  Weight: 56 kg

DRUGS (2)
  1. REMICADE [Suspect]
     Route: 042
     Dates: start: 20110801
  2. REMICADE [Suspect]
     Indication: CROHN'S DISEASE
     Dosage: DAILY DOSE 300 MG
     Route: 042
     Dates: start: 20100201, end: 20110801

REACTIONS (2)
  - COLECTOMY [None]
  - DRUG INEFFECTIVE [None]
